FAERS Safety Report 7387698-3 (Version None)
Quarter: 2011Q1

REPORT INFORMATION
  Report Type: 
  Country: None (occurrence: None)
  Receive Date: 20110331
  Receipt Date: 20101022
  Transmission Date: 20110831
  Serious: Yes (Hospitalization)
  Sender: FDA-Public Use
  Company Number: US-BAYER-201013565NA

PATIENT
  Sex: Female
  Weight: 109 kg

DRUGS (9)
  1. YASMIN [Suspect]
     Indication: CONTRACEPTION
     Dosage: UNK
     Dates: start: 20070801, end: 20080201
  2. PEPCID [Concomitant]
     Indication: GASTRIC PH INCREASED
     Dates: start: 20080101, end: 20080201
  3. NSAID'S [Concomitant]
  4. PHENERGAN HCL [Concomitant]
     Dosage: 25, PRN
  5. CELEXA [Concomitant]
     Dosage: UNK UNK, HS
  6. MAALOX [Concomitant]
  7. YAZ [Suspect]
     Indication: MENSTRUATION IRREGULAR
  8. REGLAN [Concomitant]
     Indication: NAUSEA
     Dosage: 10, QID
     Dates: start: 20080101, end: 20080201
  9. YAZ [Suspect]
     Indication: CONTRACEPTION
     Route: 048
     Dates: start: 20070801, end: 20080201

REACTIONS (4)
  - CHOLECYSTITIS CHRONIC [None]
  - ABDOMINAL PAIN UPPER [None]
  - CHOLELITHIASIS [None]
  - GALLBLADDER CHOLESTEROLOSIS [None]
